FAERS Safety Report 10328563 (Version 2)
Quarter: 2014Q4

REPORT INFORMATION
  Report Type: Spontaneous
  Country: US (occurrence: US)
  Receive Date: 20140721
  Receipt Date: 20141017
  Transmission Date: 20150528
  Serious: Yes (Hospitalization, Other)
  Sender: FDA-Public Use
  Company Number: US-BAYER-2014-107269

PATIENT
  Age: 31 Year
  Sex: Female

DRUGS (4)
  1. MIRENA [Suspect]
     Active Substance: LEVONORGESTREL
     Indication: CONTRACEPTION
     Dosage: 20 MCG/24HR, CONT
     Route: 015
     Dates: start: 20110705, end: 20120828
  2. MEDROXYPROGESTERONE [Concomitant]
     Active Substance: MEDROXYPROGESTERONE
  3. MIRENA [Suspect]
     Active Substance: LEVONORGESTREL
     Indication: CONTRACEPTION
     Dosage: 20 MCG/24HR, CONT
     Route: 015
     Dates: start: 200303, end: 200408
  4. VICODIN [Concomitant]
     Active Substance: ACETAMINOPHEN\HYDROCODONE BITARTRATE

REACTIONS (16)
  - Medical device discomfort [None]
  - Anxiety [None]
  - Genital haemorrhage [None]
  - Device dislocation [None]
  - Uterine perforation [None]
  - Uterine injury [None]
  - Internal injury [None]
  - Emotional distress [None]
  - Injury [None]
  - Depression [None]
  - Fear [None]
  - Pelvic pain [None]
  - Abdominal pain lower [None]
  - General physical health deterioration [None]
  - Abdominal pain [None]
  - Depressed mood [None]

NARRATIVE: CASE EVENT DATE: 201107
